FAERS Safety Report 11650966 (Version 2)
Quarter: 2016Q1

REPORT INFORMATION
  Report Type: Spontaneous
  Country: US (occurrence: US)
  Receive Date: 20151021
  Receipt Date: 20160314
  Transmission Date: 20160525
  Serious: No
  Sender: FDA-Public Use
  Company Number: US-ACTELION PHARMACEUTICALS US, INC.-A-NJ2015-125888

PATIENT
  Age: 72 Year
  Sex: Female

DRUGS (13)
  1. DUEXIS [Concomitant]
     Active Substance: FAMOTIDINE\IBUPROFEN
  2. AUGMENTIN [Concomitant]
     Active Substance: AMOXICILLIN\CLAVULANATE POTASSIUM
  3. VENTAVIS [Suspect]
     Active Substance: ILOPROST
     Indication: PULMONARY ARTERIAL HYPERTENSION
     Dosage: 5 MCG, 7-8X/DAY
     Route: 055
     Dates: start: 20121227
  4. MAGNESIUM OXIDE. [Concomitant]
     Active Substance: MAGNESIUM OXIDE
  5. COMBIGAN [Concomitant]
     Active Substance: BRIMONIDINE TARTRATE\TIMOLOL MALEATE
  6. GABAPENTIN. [Concomitant]
     Active Substance: GABAPENTIN
  7. CIMZIA [Concomitant]
     Active Substance: CERTOLIZUMAB PEGOL
  8. IRON [Concomitant]
     Active Substance: IRON
  9. AXID [Concomitant]
     Active Substance: NIZATIDINE
  10. DILANTIN [Concomitant]
     Active Substance: PHENYTOIN
  11. ADCIRCA [Concomitant]
     Active Substance: TADALAFIL
  12. TORSEMIDE. [Concomitant]
     Active Substance: TORSEMIDE
  13. ADVAIR HFA [Concomitant]
     Active Substance: FLUTICASONE PROPIONATE\SALMETEROL XINAFOATE

REACTIONS (3)
  - Infection [Not Recovered/Not Resolved]
  - Cough [Not Recovered/Not Resolved]
  - Dyspnoea [Unknown]

NARRATIVE: CASE EVENT DATE: 20151009
